FAERS Safety Report 5140476-8 (Version None)
Quarter: 2006Q4

REPORT INFORMATION
  Report Type: 
  Country: None (occurrence: None)
  Receive Date: 20061025
  Receipt Date: 20061010
  Transmission Date: 20070319
  Serious: Yes (Disabling, Other)
  Sender: FDA-Public Use
  Company Number: PHHO2006JP16838

PATIENT
  Age: 91 Year
  Sex: Male
  Weight: 70.0354 kg

DRUGS (1)
  1. VISUDYNE [Suspect]
     Indication: MACULAR DEGENERATION
     Dosage: 5.4 ML DAILY IV
     Route: 042
     Dates: start: 20050107, end: 20050107

REACTIONS (5)
  - ASTHENOPIA [None]
  - BLINDNESS [None]
  - DISEASE PROGRESSION [None]
  - GLAUCOMA [None]
  - VITREOUS HAEMORRHAGE [None]
